FAERS Safety Report 5717258-9 (Version None)
Quarter: 2008Q2

REPORT INFORMATION
  Report Type: 
  Country: None (occurrence: None)
  Receive Date: 20080424
  Receipt Date: 20080421
  Transmission Date: 20081010
  Serious: Yes (Life-Threatening, Other)
  Sender: FDA-Public Use
  Company Number: PHEH2008US03916

PATIENT
  Age: 52 Year
  Sex: Male
  Weight: 58.049 kg

DRUGS (6)
  1. ZOMETA [Suspect]
     Indication: MULTIPLE MYELOMA
     Dosage: 4MG MONTHLY
     Route: 042
     Dates: start: 20051201, end: 20071211
  2. THALIDOMIDE [Concomitant]
     Indication: MULTIPLE MYELOMA
  3. DEXAMETHASONE TAB [Concomitant]
     Indication: MULTIPLE MYELOMA
  4. REVLIMID [Concomitant]
     Indication: MULTIPLE MYELOMA
  5. VELCADE [Concomitant]
     Indication: MULTIPLE MYELOMA
  6. DOXIL [Concomitant]
     Indication: MULTIPLE MYELOMA

REACTIONS (4)
  - BONE SWELLING [None]
  - MULTIPLE MYELOMA [None]
  - OSTEONECROSIS [None]
  - TOOTH ABSCESS [None]
